FAERS Safety Report 4744872-X (Version None)
Quarter: 2005Q3

REPORT INFORMATION
  Report Type: 
  Country: None (occurrence: None)
  Receive Date: 20050815
  Receipt Date: 20050812
  Transmission Date: 20060218
  Serious: Yes (Hospitalization)
  Sender: FDA-Public Use
  Company Number: FR-GLAXOSMITHKLINE-B0390532A

PATIENT
  Age: 57 Year
  Sex: Male
  Weight: 72 kg

DRUGS (6)
  1. CLAMOXYL [Suspect]
     Dosage: 1G PER DAY
     Route: 042
     Dates: start: 20050721, end: 20050721
  2. TRACRIUM [Suspect]
     Dosage: 35MG PER DAY
     Route: 042
     Dates: start: 20050721, end: 20050721
  3. MIDAZOLAM HCL [Suspect]
     Dosage: 1MG PER DAY
     Route: 042
     Dates: start: 20050721, end: 20050721
  4. DIPRIVAN [Suspect]
     Dosage: 180MG PER DAY
     Route: 042
     Dates: start: 20050721, end: 20050721
  5. KARDEGIC [Concomitant]
     Indication: PAIN
     Dosage: 75MG UNKNOWN
     Route: 048
     Dates: start: 19990101
  6. SUFENTA [Concomitant]
     Route: 042
     Dates: start: 20050721, end: 20050721

REACTIONS (2)
  - HYPOTENSION [None]
  - TACHYCARDIA [None]
